FAERS Safety Report 5395630-7 (Version None)
Quarter: 2007Q3

REPORT INFORMATION
  Report Type: 
  Country: None (occurrence: None)
  Receive Date: 20070720
  Receipt Date: 20070712
  Transmission Date: 20080115
  Serious: No
  Sender: FDA-Public Use
  Company Number: THQ2007A00576

PATIENT
  Age: 39 Year
  Sex: Male

DRUGS (1)
  1. ZOTON                     (LANSOPRAZOLE) [Suspect]
     Indication: GASTROOESOPHAGEAL REFLUX DISEASE
     Dosage: (30 MG)
     Dates: start: 20061110, end: 20061116

REACTIONS (8)
  - ARTHRALGIA [None]
  - CONSTIPATION [None]
  - DIZZINESS [None]
  - EYE PAIN [None]
  - EYE SWELLING [None]
  - HYPERHIDROSIS [None]
  - MYALGIA [None]
  - NAUSEA [None]
